FAERS Safety Report 8256564-3 (Version None)
Quarter: 2012Q2

REPORT INFORMATION
  Report Type: 
  Country: None (occurrence: None)
  Receive Date: 20120403
  Receipt Date: 20120327
  Transmission Date: 20120825
  Serious: Yes (Hospitalization, Other)
  Sender: FDA-Public Use
  Company Number: US-PFIZER INC-2012023506

PATIENT
  Sex: Male

DRUGS (3)
  1. FENTANYL [Suspect]
     Dosage: UNK
  2. XALKORI [Suspect]
     Indication: LUNG NEOPLASM MALIGNANT
     Dosage: 250 MG, 1X/DAY
     Route: 048
     Dates: start: 20111216
  3. XALKORI [Suspect]
     Dosage: UNK
     Route: 048

REACTIONS (6)
  - DECREASED APPETITE [None]
  - HALLUCINATION [None]
  - PLEURAL EFFUSION [None]
  - RESPIRATORY DISTRESS [None]
  - CONFUSIONAL STATE [None]
  - QUALITY OF LIFE DECREASED [None]
